FAERS Safety Report 9276795 (Version 2)
Quarter: 2013Q2

REPORT INFORMATION
  Report Type: Spontaneous
  Country: US (occurrence: None)
  Receive Date: 20130501
  Receipt Date: 20130515
  Transmission Date: 20140414
  Serious: Yes (Hospitalization)
  Sender: FDA-Public Use
  Company Number: JPI-P-031346

PATIENT
  Age: 57 Year
  Sex: Male
  Weight: 97.52 kg

DRUGS (3)
  1. XYREM [Suspect]
     Indication: APNOEA
     Route: 048
     Dates: start: 201011
  2. LIPITOR [Concomitant]
  3. SERTRALINE HYDROCHLORIDE [Concomitant]

REACTIONS (1)
  - Chest pain [None]
